FAERS Safety Report 8243912-3 (Version None)
Quarter: 2012Q1

REPORT INFORMATION
  Report Type: 
  Country: None (occurrence: None)
  Receive Date: 20120329
  Receipt Date: 20110606
  Transmission Date: 20120608
  Serious: No
  Sender: FDA-Public Use
  Company Number: US-MYLANLABS-2011S1011847

PATIENT

DRUGS (2)
  1. ESTRADIOL [Suspect]
     Route: 062
  2. ESTRADIOL [Suspect]
     Dosage: CHANGED QW
     Route: 062

REACTIONS (2)
  - HEADACHE [None]
  - HOT FLUSH [None]
